FAERS Safety Report 7672945-0 (Version None)
Quarter: 2011Q3

REPORT INFORMATION
  Report Type: 
  Country: None (occurrence: None)
  Receive Date: 20110809
  Receipt Date: 20110808
  Transmission Date: 20111222
  Serious: Yes (Hospitalization)
  Sender: FDA-Public Use
  Company Number: US-ABBOTT-11P-163-0843783-00

PATIENT
  Sex: Female
  Weight: 72.64 kg

DRUGS (3)
  1. PROZAC [Concomitant]
     Indication: PANIC ATTACK
     Dates: start: 20070101
  2. LUPRON DEPOT [Suspect]
     Indication: ENDOMETRIOSIS
     Route: 030
     Dates: start: 20110301
  3. VIVELLE-DOT [Suspect]
     Indication: OESTROGEN REPLACEMENT THERAPY
     Dosage: 1 PATCH
     Route: 062
     Dates: start: 20110501, end: 20110726

REACTIONS (2)
  - ABDOMINAL PAIN [None]
  - PANCREATITIS [None]
